FAERS Safety Report 5195993-1 (Version None)
Quarter: 2006Q4

REPORT INFORMATION
  Report Type: 
  Country: None (occurrence: None)
  Receive Date: 20061227
  Receipt Date: 20061220
  Transmission Date: 20070319
  Serious: Yes (Life-Threatening)
  Sender: FDA-Public Use
  Company Number: 230001M06PRT

PATIENT
  Age: 48 Year
  Sex: Female
  Weight: 62 kg

DRUGS (5)
  1. REBIF [Suspect]
     Indication: MULTIPLE SCLEROSIS
     Dosage: 44, 3 IN 1 WEEKS, SUBCUTANEOUS
     Route: 058
     Dates: start: 20051130, end: 20061118
  2. ESCITALOPRAM OXALATE (ESCITALOPRAM OXALATE) [Concomitant]
  3. AMANTADINE HCL [Concomitant]
  4. INDAPAMIDE [Concomitant]
  5. PROPRANOLOL HYDROCHLORIDE [Concomitant]

REACTIONS (5)
  - CHOLELITHIASIS [None]
  - GALLBLADDER ENLARGEMENT [None]
  - GALLBLADDER OEDEMA [None]
  - HEPATITIS TOXIC [None]
  - JAUNDICE [None]
